FAERS Safety Report 26116847 (Version 1)
Quarter: 2025Q4

REPORT INFORMATION
  Report Type: Spontaneous
  Country: US (occurrence: US)
  Receive Date: 20251203
  Receipt Date: 20251203
  Transmission Date: 20260117
  Serious: No
  Sender: ROCHE
  Company Number: US-ROCHE-10000450011

PATIENT
  Sex: Female
  Weight: 90.72 kg

DRUGS (3)
  1. XOLAIR PFS [Suspect]
     Active Substance: OMALIZUMAB
     Indication: Asthma
     Dosage: 150MG/ML
     Route: 058
     Dates: start: 202001
  2. XOLAIR PFS [Suspect]
     Active Substance: OMALIZUMAB
  3. TAKHZYRO PFS [Concomitant]

REACTIONS (3)
  - Illness [Unknown]
  - Influenza [Unknown]
  - Lip blister [Unknown]
